FAERS Safety Report 8523515 (Version 9)
Quarter: 2012Q4

REPORT INFORMATION
  Report Type: 
  Country: IE (occurrence: IE)
  Receive Date: 20120420
  Receipt Date: 20121210
  Transmission Date: 20130627
  Serious: Yes (Hospitalization, Other)
  Sender: FDA-Public Use
  Company Number: PHFR2012IE001075

PATIENT
  Age: 62 Year
  Sex: Male

DRUGS (22)
  1. CLOZARIL [Suspect]
     Indication: SCHIZOPHRENIA
     Dosage: UNK UKN, UNK
     Route: 048
     Dates: start: 20050117, end: 20120417
  2. CLOZARIL [Suspect]
     Dosage: UNK
     Route: 048
     Dates: start: 20120420
  3. CLOZARIL [Suspect]
     Dosage: 550 mg (150 mg mane, 50 mg at 13:00 hrs and 350 mg nocte))
     Route: 048
  4. CLOZARIL [Suspect]
     Dosage: 325 mg, UNK (125 mg mane and 200 mg nocte)
     Route: 048
  5. ASPIRIN [Concomitant]
     Dosage: 75 mg, mane
     Route: 048
  6. EPILIM CHRONO [Concomitant]
     Dosage: 500mg mane + 100mg nocte
     Route: 048
  7. EPILIM CHRONO [Concomitant]
     Dosage: 1000 mg, nocte
     Route: 048
  8. EPILIM CHRONO [Concomitant]
     Dosage: 1500 mg, daily (500 mg mane and 1000 mg nocte)
     Route: 048
  9. EPILIM CHRONO [Concomitant]
     Dosage: 250 mg, (250 mg mane and 50 mg nocte)
  10. METOPROLOL [Concomitant]
     Dosage: 50 mg, BID
     Route: 048
  11. HYOSCINE HYDROBROMIDE [Concomitant]
     Dosage: 300 ug, TID
  12. FYBOGEL ORANGE [Concomitant]
     Dosage: 1 sachet bd prn
     Route: 048
  13. PARACETAMOL [Concomitant]
     Dosage: 1 g, QDS
     Route: 048
  14. CLARITHROMYCIN [Concomitant]
     Dosage: 500 mg, BID
     Route: 048
  15. CO AMOXICLAV [Concomitant]
     Dosage: 625 mg, TID
     Route: 048
  16. PLAVIX [Concomitant]
     Dosage: 50 mg, UNK
  17. PLAVIX [Concomitant]
     Dosage: 75 mg, daily
     Route: 048
  18. LACTULOSE [Concomitant]
     Dosage: 1 DF, BID
     Route: 048
  19. MOVICOL [Concomitant]
     Dosage: 1 DF, (Sachet)
  20. KWELLS [Concomitant]
     Indication: SALIVARY HYPERSECRETION
     Route: 048
  21. CRESTOR [Concomitant]
     Dosage: 5 mg, nocte
     Route: 048
  22. NEILMED [Concomitant]
     Dosage: 1 DF, BID
     Route: 048

REACTIONS (11)
  - Fall [Unknown]
  - Convulsion [Recovered/Resolved]
  - Syncope [Recovered/Resolved]
  - Mental impairment [Unknown]
  - Cardiac disorder [Recovered/Resolved]
  - Pulmonary valve incompetence [Recovered/Resolved]
  - Sinus tachycardia [Recovered/Resolved]
  - Chest pain [Recovered/Resolved]
  - Electrocardiogram QT prolonged [Unknown]
  - Antipsychotic drug level increased [Unknown]
  - Platelet count decreased [Not Recovered/Not Resolved]
